FAERS Safety Report 6021547-0 (Version None)
Quarter: 2008Q4

REPORT INFORMATION
  Report Type: 
  Country: None (occurrence: None)
  Receive Date: 20081222
  Receipt Date: 20081101
  Transmission Date: 20090506
  Serious: No
  Sender: FDA-Public Use
  Company Number: SPV1-2008-02394

PATIENT
  Age: 5 Year
  Sex: Female
  Weight: 22.2 kg

DRUGS (2)
  1. VYVANSE [Suspect]
     Indication: ATTENTION DEFICIT/HYPERACTIVITY DISORDER
     Dosage: 30 MG, 1X/DAY;QD, ORAL
     Route: 048
     Dates: start: 20070901, end: 20070901
  2. CHILDREN'S BENADRYL ALLERGY + SINUS (DIPHENYDRAMINE HYDROCHLORIDE, PSE [Concomitant]

REACTIONS (3)
  - NAUSEA [None]
  - OFF LABEL USE [None]
  - TIC [None]
